FAERS Safety Report 6127959-9 (Version None)
Quarter: 2009Q1

REPORT INFORMATION
  Report Type: 
  Country: None (occurrence: None)
  Receive Date: 20090323
  Receipt Date: 20090310
  Transmission Date: 20090719
  Serious: Yes (Other)
  Sender: FDA-Public Use
  Company Number: US-PFIZER INC-2006102258

PATIENT
  Sex: Female
  Weight: 76.19 kg

DRUGS (8)
  1. PROVERA [Suspect]
     Indication: HORMONE REPLACEMENT THERAPY
     Route: 048
     Dates: start: 19890801, end: 20011101
  2. PROVERA [Suspect]
     Indication: HOT FLUSH
  3. PREMARIN [Suspect]
     Indication: HORMONE REPLACEMENT THERAPY
     Route: 065
     Dates: start: 19890801, end: 20011101
  4. PREMARIN [Suspect]
     Indication: HOT FLUSH
  5. PROGESTERONE [Suspect]
     Indication: HOT FLUSH
     Dosage: UNK
     Route: 065
  6. PREMPRO [Suspect]
     Indication: HORMONE REPLACEMENT THERAPY
     Route: 065
     Dates: start: 19890801, end: 20011101
  7. PREMPRO [Suspect]
     Indication: HOT FLUSH
  8. CYCRIN [Suspect]
     Indication: HORMONE REPLACEMENT THERAPY
     Route: 065
     Dates: start: 19890801, end: 20011101

REACTIONS (1)
  - BREAST CANCER [None]
